FAERS Safety Report 6443260-8 (Version None)
Quarter: 2009Q4

REPORT INFORMATION
  Report Type: 
  Country: None (occurrence: None)
  Receive Date: 20091112
  Receipt Date: 20091030
  Transmission Date: 20100525
  Serious: Yes (Other)
  Sender: FDA-Public Use
  Company Number: 2009AL007011

PATIENT
  Age: 64 Year
  Sex: Male

DRUGS (2)
  1. LIDOCAINE HYDROCHLORIDE 2% [Suspect]
     Indication: LOCAL ANAESTHESIA
     Dosage: 2.2 ML;X1;DENT
     Route: 004
     Dates: start: 20061103, end: 20061103
  2. ADRENALINE [Concomitant]

REACTIONS (1)
  - MALAISE [None]
